FAERS Safety Report 23388820 (Version 1)
Quarter: 2024Q1

REPORT INFORMATION
  Report Type: Spontaneous
  Country: US (occurrence: US)
  Receive Date: 20240110
  Receipt Date: 20240110
  Transmission Date: 20240410
  Serious: No
  Sender: FDA-Public Use
  Company Number: US-BAUSCH-BL-2024-000231

PATIENT
  Age: 42 Year
  Sex: Female

DRUGS (2)
  1. ALTRENO [Suspect]
     Active Substance: TRETINOIN
     Indication: Therapeutic skin care topical
     Dosage: FIVE TIMES A WEEK
     Route: 061
  2. ALTRENO [Suspect]
     Active Substance: TRETINOIN
     Dosage: FOUR TIMES A WEEK
     Route: 061

REACTIONS (3)
  - Hyperaesthesia [Unknown]
  - Application site irritation [Unknown]
  - Application site erythema [Unknown]
